FAERS Safety Report 21029822 (Version 5)
Quarter: 2022Q4

REPORT INFORMATION
  Report Type: Spontaneous
  Country: CA (occurrence: CA)
  Receive Date: 20220630
  Receipt Date: 20221017
  Transmission Date: 20230112
  Serious: Yes (Other)
  Sender: FDA-Public Use
  Company Number: CA-002147023-NVSC2022CA148025

PATIENT
  Age: 60 Year
  Sex: Female

DRUGS (6)
  1. AIMOVIG [Suspect]
     Active Substance: ERENUMAB-AOOE
     Indication: Migraine
     Dosage: 140 MILLIGRAM PER MILLILITRE
     Route: 065
     Dates: start: 20220506
  2. CANDESARTAN [Suspect]
     Active Substance: CANDESARTAN
     Indication: Migraine prophylaxis
     Dosage: 12 MILLIGRAM
     Route: 065
  3. EPIVAL [Concomitant]
     Active Substance: DIVALPROEX SODIUM
     Indication: Migraine prophylaxis
     Dosage: 375 MILLIGRAM, TID
     Route: 065
  4. ELETRIPTAN [Concomitant]
     Active Substance: ELETRIPTAN
     Indication: Migraine
     Dosage: 40 MILLIGRAM
     Route: 065
  5. ESTROGEL [Concomitant]
     Active Substance: ESTRADIOL
     Indication: Menopause
     Dosage: 0.06 PERCENT
     Route: 065
  6. PROGESTERONE [Concomitant]
     Active Substance: PROGESTERONE
     Indication: Menopause
     Dosage: 100 MILLIGRAM
     Route: 065

REACTIONS (5)
  - Hypothyroidism [Unknown]
  - Migraine [Unknown]
  - Device malfunction [Unknown]
  - Needle issue [Unknown]
  - Product dose omission issue [Unknown]
